FAERS Safety Report 6834105-2 (Version None)
Quarter: 2010Q3

REPORT INFORMATION
  Report Type: 
  Country: None (occurrence: None)
  Receive Date: 20100712
  Receipt Date: 20070627
  Transmission Date: 20110219
  Serious: No
  Sender: FDA-Public Use
  Company Number: US-PFIZER INC-2007029595

PATIENT
  Sex: Female
  Weight: 61.2 kg

DRUGS (6)
  1. CHANTIX [Suspect]
     Indication: SMOKING CESSATION THERAPY
     Route: 048
     Dates: start: 20070328, end: 20070406
  2. ZOCOR [Concomitant]
  3. ZOLOFT [Concomitant]
  4. TRANXENE [Concomitant]
  5. ZANTAC [Concomitant]
  6. SYNTHROID [Concomitant]

REACTIONS (6)
  - BALANCE DISORDER [None]
  - BREAST PAIN [None]
  - CHEST PAIN [None]
  - DIZZINESS [None]
  - GAIT DISTURBANCE [None]
  - NAUSEA [None]
